FAERS Safety Report 12213255 (Version 1)
Quarter: 2016Q1

REPORT INFORMATION
  Report Type: Spontaneous
  Country: PL (occurrence: PL)
  Receive Date: 20160328
  Receipt Date: 20160328
  Transmission Date: 20160526
  Serious: Yes (Death, Other)
  Sender: FDA-Public Use
  Company Number: PHHY2016PL038892

PATIENT
  Sex: Female

DRUGS (4)
  1. NELARABINE [Suspect]
     Active Substance: NELARABINE
     Indication: T-CELL LYMPHOMA
     Route: 065
     Dates: start: 20151006, end: 20151006
  2. CHOP [Concomitant]
     Active Substance: CYCLOPHOSPHAMIDE\DOXORUBICIN\PREDNISONE\VINCRISTINE
     Indication: PRODUCT USED FOR UNKNOWN INDICATION
     Dosage: 4X
     Route: 065
  3. NELARABINE [Suspect]
     Active Substance: NELARABINE
     Dosage: UNK
     Route: 065
     Dates: start: 20151008, end: 20151008
  4. NELARABINE [Suspect]
     Active Substance: NELARABINE
     Dosage: UNK
     Route: 065
     Dates: start: 20151010, end: 20151010

REACTIONS (6)
  - T-cell lymphoma [Unknown]
  - Malignant neoplasm progression [Unknown]
  - Epstein-Barr virus infection [Fatal]
  - Metastases to spleen [Unknown]
  - Histiocytosis haematophagic [Fatal]
  - Metastases to liver [Unknown]

NARRATIVE: CASE EVENT DATE: 20151024
